FAERS Safety Report 18996639 (Version 1)
Quarter: 2021Q1

REPORT INFORMATION
  Report Type: Spontaneous
  Country: JP (occurrence: JP)
  Receive Date: 20210311
  Receipt Date: 20210311
  Transmission Date: 20210420
  Serious: No
  Sender: FDA-Public Use
  Company Number: JP-UCBSA-2021007948

PATIENT
  Age: 8 Decade
  Sex: Male

DRUGS (1)
  1. NEUPRO [Suspect]
     Active Substance: ROTIGOTINE
     Indication: PARKINSON^S DISEASE
     Dosage: STRENGTH 1MG/24HR
     Route: 062

REACTIONS (3)
  - Device adhesion issue [Unknown]
  - Application site pruritus [Recovering/Resolving]
  - Wrong technique in product usage process [Unknown]
